FAERS Safety Report 5423485-0 (Version None)
Quarter: 2007Q3

REPORT INFORMATION
  Report Type: 
  Country: None (occurrence: None)
  Receive Date: 20070727
  Receipt Date: 20070523
  Transmission Date: 20080115
  Serious: No
  Sender: FDA-Public Use
  Company Number: 264210

PATIENT
  Age: 22 Year
  Sex: Female

DRUGS (1)
  1. LEVEMIR [Suspect]
     Indication: TYPE 1 DIABETES MELLITUS
     Dosage: 26 IU, QD, SUBCUTANEOUS
     Route: 058
     Dates: start: 20060801

REACTIONS (1)
  - INJECTION SITE ERYTHEMA [None]
